FAERS Safety Report 4700634-0 (Version None)
Quarter: 2005Q2

REPORT INFORMATION
  Report Type: 
  Country: None (occurrence: None)
  Receive Date: 20050627
  Receipt Date: 20050622
  Transmission Date: 20051028
  Serious: Yes (Hospitalization)
  Sender: FDA-Public Use
  Company Number: GB-MERCK-0506GBR00169

PATIENT
  Age: 75 Year
  Sex: Female

DRUGS (11)
  1. FOSAMAX [Suspect]
     Indication: OSTEOPOROSIS
     Route: 048
     Dates: start: 20030101, end: 20050601
  2. ASPIRIN [Suspect]
     Indication: MYOCARDIAL ISCHAEMIA
     Route: 048
  3. OMEPRAZOLE [Concomitant]
     Route: 048
     Dates: start: 20050509, end: 20050602
  4. FOSINOPRIL SODIUM [Concomitant]
     Indication: BLOOD PRESSURE INCREASED
     Route: 048
  5. DIPYRIDAMOLE [Concomitant]
     Route: 048
  6. ATENOLOL [Concomitant]
     Indication: MYOCARDIAL ISCHAEMIA
     Route: 048
  7. PRAVASTATIN SODIUM [Concomitant]
     Indication: MYOCARDIAL ISCHAEMIA
     Route: 048
  8. ISOSORBIDE MONONITRATE [Concomitant]
     Route: 065
  9. CALCIUM CARBONATE AND CHOLECALCIFEROL [Concomitant]
     Route: 065
  10. AMLODIPINE BESYLATE [Concomitant]
     Route: 065
  11. NITROGLYCERIN [Concomitant]
     Route: 055

REACTIONS (5)
  - DYSPHAGIA [None]
  - GASTROINTESTINAL TRACT MUCOSAL DISCOLOURATION [None]
  - OESOPHAGEAL STENOSIS [None]
  - OESOPHAGITIS [None]
  - WEIGHT DECREASED [None]
